FAERS Safety Report 4911205-5 (Version None)
Quarter: 2006Q1

REPORT INFORMATION
  Report Type: 
  Country: None (occurrence: None)
  Receive Date: 20060209
  Receipt Date: 20051228
  Transmission Date: 20060701
  Serious: Yes (Hospitalization)
  Sender: FDA-Public Use
  Company Number: 2006015981

PATIENT
  Age: 5 Year
  Sex: Male

DRUGS (1)
  1. CEFPODOXIME PROXETIL [Suspect]
     Indication: BRONCHITIS
     Dosage: ORAL
     Route: 048
     Dates: start: 20051119, end: 20051124

REACTIONS (1)
  - KAWASAKI'S DISEASE [None]
